FAERS Safety Report 6720253-4 (Version None)
Quarter: 2010Q2

REPORT INFORMATION
  Report Type: 
  Country: None (occurrence: None)
  Receive Date: 20100507
  Receipt Date: 20100428
  Transmission Date: 20101027
  Serious: Yes (Hospitalization)
  Sender: FDA-Public Use
  Company Number: 2010SP014737

PATIENT
  Age: 49 Year
  Sex: Female

DRUGS (3)
  1. VIRAFERONPEG [Suspect]
     Indication: HEPATITIS C
     Dosage: 110 MCG;QW;
     Dates: start: 20090914, end: 20091227
  2. RIBAVIRIN [Suspect]
     Indication: HEPATITIS C
     Dosage: 1000 MG;QD;PO
     Route: 048
     Dates: start: 20090914, end: 20091227
  3. TAHOR (CON.) [Concomitant]

REACTIONS (2)
  - ASTHENIA [None]
  - MYOCARDITIS [None]
